FAERS Safety Report 10509193 (Version 3)
Quarter: 2015Q3

REPORT INFORMATION
  Report Type: Spontaneous
  Country: US (occurrence: US)
  Receive Date: 20141009
  Receipt Date: 20150818
  Transmission Date: 20151125
  Serious: No
  Sender: FDA-Public Use
  Company Number: US-GILEAD-2014-0117646

PATIENT
  Age: 51 Year
  Sex: Male

DRUGS (15)
  1. CARAFATE [Concomitant]
     Active Substance: SUCRALFATE
  2. METFORMIN [Concomitant]
     Active Substance: METFORMIN HYDROCHLORIDE
  3. LETAIRIS [Suspect]
     Active Substance: AMBRISENTAN
     Indication: DRUG ABUSE
     Dosage: 5 MG, QD
     Route: 048
     Dates: start: 20130326, end: 20130829
  4. GAVILYTE C [Concomitant]
  5. NADOLOL. [Concomitant]
     Active Substance: NADOLOL
  6. BUPROPION. [Concomitant]
     Active Substance: BUPROPION
  7. HUMULIN N [Concomitant]
     Active Substance: INSULIN HUMAN
  8. OMEPRAZOLE. [Concomitant]
     Active Substance: OMEPRAZOLE
  9. NORCO [Concomitant]
     Active Substance: ACETAMINOPHEN\HYDROCODONE BITARTRATE
  10. LISINOPRIL. [Concomitant]
     Active Substance: LISINOPRIL
  11. LETAIRIS [Suspect]
     Active Substance: AMBRISENTAN
     Indication: PULMONARY HYPERTENSION
     Dosage: 15 MG, QD
     Route: 048
     Dates: start: 20140715, end: 20140815
  12. SILDENAFIL. [Concomitant]
     Active Substance: SILDENAFIL
  13. LETAIRIS [Suspect]
     Active Substance: AMBRISENTAN
     Indication: PORTOPULMONARY HYPERTENSION
     Dosage: 10 MG, QD
     Route: 048
     Dates: start: 20130830, end: 20140714
  14. GLIPIZIDE. [Concomitant]
     Active Substance: GLIPIZIDE
  15. SIMVASTATIN. [Concomitant]
     Active Substance: SIMVASTATIN

REACTIONS (1)
  - Liver function test abnormal [Unknown]

NARRATIVE: CASE EVENT DATE: 20140815
